FAERS Safety Report 7256806-7 (Version None)
Quarter: 2011Q1

REPORT INFORMATION
  Report Type: 
  Country: None (occurrence: None)
  Receive Date: 20110129
  Receipt Date: 20100714
  Transmission Date: 20110831
  Serious: No
  Sender: FDA-Public Use
  Company Number: US-ABBOTT-10P-163-0652308-00

PATIENT
  Age: 54 Year
  Sex: Female

DRUGS (7)
  1. LEXAPRO [Concomitant]
     Indication: ANXIETY
     Route: 048
  2. AMBIEN [Concomitant]
     Indication: INSOMNIA
     Route: 048
  3. HUMIRA [Suspect]
     Indication: CROHN'S DISEASE
     Dates: start: 20090101
  4. KLONOPIN [Concomitant]
     Indication: ANXIETY
     Dosage: IN THE AM AND PM
  5. NEXIUM [Concomitant]
     Indication: GASTROOESOPHAGEAL REFLUX DISEASE
     Route: 048
  6. COLAZAL [Concomitant]
     Indication: DYSPEPSIA
     Dosage: 3 PILLS WITH EACH MEAL DAILY
  7. BENTYL [Concomitant]
     Indication: IRRITABLE BOWEL SYNDROME
     Route: 048

REACTIONS (4)
  - INCORRECT DOSE ADMINISTERED [None]
  - HYPERHIDROSIS [None]
  - WRONG TECHNIQUE IN DRUG USAGE PROCESS [None]
  - INJECTION SITE HAEMORRHAGE [None]
